FAERS Safety Report 11356463 (Version 1)
Quarter: 2015Q3

REPORT INFORMATION
  Report Type: Spontaneous
  Country: CH (occurrence: CH)
  Receive Date: 20150807
  Receipt Date: 20150807
  Transmission Date: 20151125
  Serious: Yes (Hospitalization)
  Sender: FDA-Public Use
  Company Number: CH-TEVA-583007ISR

PATIENT
  Age: 79 Year
  Sex: Male

DRUGS (10)
  1. DAFALGAN [Concomitant]
     Active Substance: ACETAMINOPHEN
     Route: 065
  2. OBRACIN [Suspect]
     Active Substance: TOBRAMYCIN
     Dosage: 480 MILLIGRAM DAILY; LAST DOSE ADMINISTERED ON 15-JUN-2015 AT 11:00 HRS
     Route: 041
     Dates: start: 20150614, end: 20150615
  3. ZYLORIC [Concomitant]
     Active Substance: ALLOPURINOL
     Route: 065
  4. ZESTRIL [Concomitant]
     Active Substance: LISINOPRIL
     Route: 065
  5. PANTOZOL [Concomitant]
     Active Substance: PANTOPRAZOLE SODIUM
     Route: 065
  6. CONCOR [Concomitant]
     Active Substance: BISOPROLOL FUMARATE
     Route: 065
  7. CLAMOXYL [Suspect]
     Active Substance: AMOXICILLIN\CLAVULANIC ACID
     Dosage: 12 GRAM DAILY; FOLLOWING OCCURRENCE OF RENAL INSUFFICIENCY: 4 X 2 G
     Route: 065
  8. OBRACIN [Suspect]
     Active Substance: TOBRAMYCIN
     Dosage: 600 MILLIGRAM DAILY;
     Route: 041
     Dates: start: 20150611, end: 20150613
  9. ATORVASTATIN [Concomitant]
     Active Substance: ATORVASTATIN
     Route: 048
  10. TORASEMID [Concomitant]
     Active Substance: TORSEMIDE
     Dosage: 20 MILLIGRAM DAILY;
     Route: 065

REACTIONS (1)
  - Acute kidney injury [Recovering/Resolving]

NARRATIVE: CASE EVENT DATE: 20150615
